FAERS Safety Report 10376828 (Version 1)
Quarter: 2014Q3

REPORT INFORMATION
  Report Type: Spontaneous
  Country: US (occurrence: US)
  Receive Date: 20140811
  Receipt Date: 20140811
  Transmission Date: 20150326
  Serious: Yes (Other)
  Sender: FDA-Public Use
  Company Number: US-GILEAD-2014-0111590

PATIENT
  Age: 59 Year
  Sex: Female

DRUGS (2)
  1. REVATIO [Concomitant]
     Active Substance: SILDENAFIL CITRATE
  2. LETAIRIS [Suspect]
     Active Substance: AMBRISENTAN
     Indication: PRODUCT USED FOR UNKNOWN INDICATION
     Dosage: 10 MG, QD
     Route: 065
     Dates: start: 20140323

REACTIONS (7)
  - Dyspnoea [Unknown]
  - Cardiac failure [Unknown]
  - Weight increased [Unknown]
  - Malaise [Unknown]
  - Heart rate increased [Unknown]
  - Gastrooesophageal reflux disease [Unknown]
  - Breast pain [Unknown]
